FAERS Safety Report 13865101 (Version 1)
Quarter: 2017Q3

REPORT INFORMATION
  Report Type: Spontaneous
  Country: US (occurrence: US)
  Receive Date: 20170814
  Receipt Date: 20170814
  Transmission Date: 20171127
  Serious: Yes (Life-Threatening, Hospitalization, Other)
  Sender: FDA-Public Use
  Company Number: US-BRISTOL-MYERS SQUIBB COMPANY-BMS-2017-068882

PATIENT
  Age: 79 Year
  Sex: Male
  Weight: 136.4 kg

DRUGS (2)
  1. LISINOPRIL. [Suspect]
     Active Substance: LISINOPRIL
     Indication: HYPERTENSION
     Dosage: 2.5 MG, UNK
     Route: 065
     Dates: end: 20170626
  2. COUMADIN [Suspect]
     Active Substance: WARFARIN SODIUM
     Indication: THROMBOSIS PROPHYLAXIS
     Dosage: UNK
     Route: 065

REACTIONS (11)
  - Ventricular tachycardia [Unknown]
  - Anticoagulation drug level above therapeutic [Recovering/Resolving]
  - Disease progression [Unknown]
  - Hypotension [Recovered/Resolved]
  - Streptococcal bacteraemia [Recovered/Resolved]
  - Cardiac failure congestive [Recovered/Resolved]
  - Decreased appetite [Unknown]
  - Myocardial infarction [Unknown]
  - Thrombocytopenia [Recovering/Resolving]
  - Acute kidney injury [Recovered/Resolved with Sequelae]
  - Inguinal hernia [Unknown]

NARRATIVE: CASE EVENT DATE: 20170620
